FAERS Safety Report 13999068 (Version 1)
Quarter: 2017Q3

REPORT INFORMATION
  Report Type: Report from Study
  Country: CO (occurrence: CO)
  Receive Date: 20170922
  Receipt Date: 20170922
  Transmission Date: 20171128
  Serious: Yes (Death, Life-Threatening, Hospitalization, Other)
  Sender: FDA-Public Use
  Company Number: CO-AMGEN-COLSL2017143345

PATIENT
  Sex: Female

DRUGS (1)
  1. KYPROLIS [Suspect]
     Active Substance: CARFILZOMIB
     Indication: PLASMA CELL MYELOMA
     Dosage: 32 MG, UNK (28 DAYS CYCLE)
     Route: 042
     Dates: start: 20170830, end: 20170831

REACTIONS (2)
  - Death [Fatal]
  - Unevaluable event [Unknown]

NARRATIVE: CASE EVENT DATE: 20170913
